FAERS Safety Report 7708206-0 (Version None)
Quarter: 2011Q3

REPORT INFORMATION
  Report Type: 
  Country: None (occurrence: None)
  Receive Date: 20110825
  Receipt Date: 20110815
  Transmission Date: 20111222
  Serious: No
  Sender: FDA-Public Use
  Company Number: US-BIOGENIDEC-2011BI031306

PATIENT
  Age: 34 Year
  Sex: Female

DRUGS (1)
  1. TYSABRI [Suspect]
     Indication: MULTIPLE SCLEROSIS
     Route: 042
     Dates: start: 20081121

REACTIONS (7)
  - POST PROCEDURAL SWELLING [None]
  - PAIN [None]
  - BLOOD COUNT ABNORMAL [None]
  - OESOPHAGEAL PERFORATION [None]
  - DIAPHRAGMATIC RUPTURE [None]
  - PYREXIA [None]
  - POST PROCEDURAL COMPLICATION [None]
